FAERS Safety Report 9641145 (Version 1)
Quarter: 2013Q4

REPORT INFORMATION
  Report Type: Report from Study
  Country: FR (occurrence: FR)
  Receive Date: 20131023
  Receipt Date: 20131023
  Transmission Date: 20140711
  Serious: Yes (Hospitalization)
  Sender: FDA-Public Use
  Company Number: FR-ASTELLAS-2013US010773

PATIENT
  Age: 57 Year
  Sex: Male
  Weight: 113 kg

DRUGS (8)
  1. BLINDED ENZALUTAMIDE [Suspect]
     Indication: PROSTATE CANCER
     Dosage: BLINDED
     Route: 048
     Dates: start: 20120705
  2. FIRMAGON                           /01764801/ [Concomitant]
     Indication: PRODUCT USED FOR UNKNOWN INDICATION
     Dosage: 80 MG, MONTHLY
     Route: 058
     Dates: start: 201202
  3. TEMERIT [Concomitant]
     Indication: PRODUCT USED FOR UNKNOWN INDICATION
     Dosage: UNK
     Route: 065
  4. TEMERIT [Concomitant]
     Dosage: 5 MG IN AM, 1.25 MG IN PM
  5. TRIATEC                            /01167601/ [Concomitant]
     Indication: PRODUCT USED FOR UNKNOWN INDICATION
     Dosage: UNK
     Route: 065
  6. TRIATEC                            /01167601/ [Concomitant]
     Dosage: 5 MG IN AM, 2.5 MG IN PM
     Route: 065
  7. COUMADIN                           /00014802/ [Concomitant]
     Indication: PRODUCT USED FOR UNKNOWN INDICATION
     Dosage: UNK
     Route: 065
  8. COUMADIN                           /00014802/ [Concomitant]
     Dosage: 9 MG, QHS
     Route: 065
     Dates: start: 20130925

REACTIONS (1)
  - Exercise test abnormal [Recovered/Resolved]
